FAERS Safety Report 12628454 (Version 1)
Quarter: 2016Q3

REPORT INFORMATION
  Report Type: Spontaneous
  Country: US (occurrence: None)
  Receive Date: 20160805
  Receipt Date: 20160805
  Transmission Date: 20161109
  Serious: Yes (Other)
  Sender: FDA-Public Use
  Company Number: None

PATIENT
  Age: 69 Year
  Sex: Female
  Weight: 61.24 kg

DRUGS (6)
  1. CALCIUM [Concomitant]
     Active Substance: CALCIUM
  2. REXULTI [Suspect]
     Active Substance: BREXPIPRAZOLE
     Indication: DEPRESSION
     Dosage: .5 - 3MG 1 PILL ONCE DAILY MOUTH
     Route: 048
     Dates: start: 20110525, end: 20120609
  3. VITS [Concomitant]
  4. VITAMIN D3 [Concomitant]
     Active Substance: CHOLECALCIFEROL
  5. OXYBUTYNIN [Concomitant]
     Active Substance: OXYBUTYNIN
  6. BABY ASPIRIN [Concomitant]
     Active Substance: ASPIRIN

REACTIONS (4)
  - Tardive dyskinesia [None]
  - Hypersensitivity [None]
  - Grimacing [None]
  - Tic [None]

NARRATIVE: CASE EVENT DATE: 20140404
